FAERS Safety Report 4384370-9 (Version None)
Quarter: 2004Q2

REPORT INFORMATION
  Report Type: 
  Country: None (occurrence: None)
  Receive Date: 20040624
  Receipt Date: 20030110
  Transmission Date: 20050107
  Serious: Yes (Death, Hospitalization)
  Sender: FDA-Public Use
  Company Number: US-BRISTOL-MYERS SQUIBB COMPANY-12156311

PATIENT
  Age: 32 Year
  Sex: Female
  Weight: 51 kg

DRUGS (9)
  1. ATAZANAVIR [Suspect]
     Indication: HIV INFECTION
     Dosage: THERAPY WAS INTERRUPTED ON 02-JAN-2003 AND RESTARTED ON 29-JAN-2003
     Route: 048
     Dates: start: 20021220, end: 20030203
  2. VIDEX EC [Suspect]
     Indication: HIV INFECTION
     Route: 048
     Dates: start: 20021118, end: 20030203
  3. VIREAD [Suspect]
     Indication: HIV INFECTION
     Route: 048
     Dates: start: 20021118, end: 20030203
  4. CIDOFOVIR [Suspect]
     Indication: HERPES SIMPLEX
     Route: 042
     Dates: start: 20021223, end: 20021223
  5. FORTOVASE [Suspect]
     Indication: HIV INFECTION
     Dates: start: 20021118, end: 20030203
  6. BACTRIM DS [Concomitant]
     Route: 048
  7. AZITROMAX [Concomitant]
  8. M.V.I. [Concomitant]
  9. ZOVIRAX [Concomitant]
     Route: 061

REACTIONS (3)
  - ACQUIRED IMMUNODEFICIENCY SYNDROME [None]
  - PANCREATITIS ACUTE [None]
  - RENAL FAILURE ACUTE [None]
